FAERS Safety Report 4752426-4 (Version None)
Quarter: 2005Q3

REPORT INFORMATION
  Report Type: 
  Country: None (occurrence: None)
  Receive Date: 20050823
  Receipt Date: 20050802
  Transmission Date: 20060218
  Serious: Yes (Death, Hospitalization)
  Sender: FDA-Public Use
  Company Number: WAES 0508GBR00057

PATIENT
  Age: 88 Year
  Sex: Female

DRUGS (13)
  1. VIOXX [Suspect]
     Indication: PAIN
     Dosage: 25 MG/DAILY PO
     Route: 048
  2. CELECOXIB [Suspect]
     Indication: OSTEOARTHRITIS
     Dosage: 200 MG DAILY
     Dates: start: 20031202, end: 20040116
  3. ASPIRIN [Suspect]
     Indication: ANTICOAGULANT THERAPY
     Dosage: 75 MG DAILY
  4. DICLOFENAC [Suspect]
     Indication: ANALGESIC EFFECT
     Dates: start: 20040101
  5. ACETAMINOPHEN [Concomitant]
  6. ACETAMINOPHEN (+) DIHYDROCODEINE BITARTR [Concomitant]
  7. ALUMINUM HYDROXIDE/MG TRISILICATE [Concomitant]
  8. AMILORIDE HYDROCHLORIDE (+) FUROSEMIDE [Concomitant]
  9. DIGOXIN [Concomitant]
  10. ETIDRONATE DISODIUM [Concomitant]
  11. LACTULOSE [Concomitant]
  12. LOSARTAN POTASSIUM [Concomitant]
  13. NIFEDIPINE [Concomitant]

REACTIONS (9)
  - GASTRIC ULCER HAEMORRHAGE [None]
  - GASTROINTESTINAL HAEMORRHAGE [None]
  - MYOCARDIAL ISCHAEMIA [None]
  - OEDEMA PERIPHERAL [None]
  - OESOPHAGITIS [None]
  - PERICARDIAL EFFUSION [None]
  - PROCTITIS [None]
  - PULMONARY EMBOLISM [None]
  - RENAL FAILURE ACUTE [None]
